FAERS Safety Report 22614278 (Version 2)
Quarter: 2023Q2

REPORT INFORMATION
  Report Type: Report from Study
  Country: CA (occurrence: CA)
  Receive Date: 20230619
  Receipt Date: 20230621
  Transmission Date: 20230722
  Serious: Yes (Other)
  Sender: FDA-Public Use
  Company Number: CA-BIOGEN-2023BI01211264

PATIENT
  Sex: Female

DRUGS (1)
  1. TECFIDERA [Suspect]
     Active Substance: DIMETHYL FUMARATE
     Indication: Multiple sclerosis
     Dosage: MAINTENANCE DOSE
     Route: 050
     Dates: start: 20180514

REACTIONS (5)
  - Diplegia [Not Recovered/Not Resolved]
  - Depression [Unknown]
  - Magnetic resonance imaging abnormal [Not Recovered/Not Resolved]
  - Crying [Unknown]
  - Drug ineffective [Not Recovered/Not Resolved]
